FAERS Safety Report 9133157 (Version 1)
Quarter: 2013Q1

REPORT INFORMATION
  Report Type: Spontaneous
  Country: ES (occurrence: US)
  Receive Date: 20130301
  Receipt Date: 20130301
  Transmission Date: 20140127
  Serious: Yes (Other)
  Sender: FDA-Public Use
  Company Number: US-PFIZER INC-2013069350

PATIENT
  Age: 34 Year
  Sex: Female

DRUGS (4)
  1. PHENYTOIN [Suspect]
     Indication: GRAND MAL CONVULSION
     Dosage: 100 MG, 4X/DAY
  2. PHENYTOIN [Suspect]
     Dosage: 130 MG, EVERY 4 HRS
  3. PRIMIDONE [Suspect]
     Dosage: 250 MG EVERY SIX HOURS
  4. PHENOBARBITAL SODIUM [Concomitant]
     Dosage: 100 MG EVERY SIX HOURS

REACTIONS (2)
  - Ophthalmoplegia [Recovered/Resolved]
  - Toxicity to various agents [Recovered/Resolved]
